FAERS Safety Report 15050533 (Version 1)
Quarter: 2018Q2

REPORT INFORMATION
  Report Type: Spontaneous
  Country: FR (occurrence: FR)
  Receive Date: 20180622
  Receipt Date: 20180622
  Transmission Date: 20180711
  Serious: Yes (Disabling)
  Sender: FDA-Public Use
  Company Number: FR-MYLANLABS-2018M1042002

PATIENT
  Age: 73 Year
  Sex: Male

DRUGS (3)
  1. PERMIXON [Suspect]
     Active Substance: HERBALS\SAW PALMETTO
     Indication: PRODUCT USED FOR UNKNOWN INDICATION
     Dosage: UNK
     Route: 048
  2. HYDROCORTISONE. [Suspect]
     Active Substance: HYDROCORTISONE
     Indication: PRODUCT USED FOR UNKNOWN INDICATION
     Dosage: UNK
  3. AVASTIN [Suspect]
     Active Substance: BEVACIZUMAB
     Indication: ADENOCARCINOMA
     Dosage: UNK
     Route: 042

REACTIONS (4)
  - Visual acuity reduced [Unknown]
  - Visual field defect [Unknown]
  - Blindness [Unknown]
  - Hypoacusis [Unknown]

NARRATIVE: CASE EVENT DATE: 2015
